FAERS Safety Report 24771515 (Version 3)
Quarter: 2025Q1

REPORT INFORMATION
  Report Type: Report from Study
  Country: CL (occurrence: CL)
  Receive Date: 20241224
  Receipt Date: 20250107
  Transmission Date: 20250409
  Serious: Yes (Hospitalization, Other)
  Sender: TAKEDA
  Company Number: CL-TAKEDA-2024TUS124574

PATIENT
  Age: 14 Year
  Sex: Male

DRUGS (4)
  1. IDURSULFASE [Suspect]
     Active Substance: IDURSULFASE
     Indication: Mucopolysaccharidosis II
     Dosage: 0.5 MILLIGRAM/KILOGRAM, 1/WEEK
  2. IDURSULFASE [Suspect]
     Active Substance: IDURSULFASE
     Indication: Supplementation therapy
     Dosage: 0.5 MILLIGRAM/KILOGRAM, 1/WEEK
  3. LEVETIRACETAM [Suspect]
     Active Substance: LEVETIRACETAM
     Indication: Seizure
  4. DIAZEPAM [Concomitant]
     Active Substance: DIAZEPAM

REACTIONS (4)
  - Epilepsy [Recovering/Resolving]
  - Dermatitis allergic [Recovered/Resolved]
  - Urticaria [Recovering/Resolving]
  - Somnolence [Recovering/Resolving]

NARRATIVE: CASE EVENT DATE: 20241209
